FAERS Safety Report 5912828-7 (Version None)
Quarter: 2008Q4

REPORT INFORMATION
  Report Type: 
  Country: None (occurrence: None)
  Receive Date: 20081006
  Receipt Date: 20080926
  Transmission Date: 20090506
  Serious: Yes (Other)
  Sender: FDA-Public Use
  Company Number: 2008SP019802

PATIENT
  Sex: Female

DRUGS (1)
  1. NOXAFIL [Suspect]
     Indication: INFECTION PROPHYLAXIS
     Dosage: 400 MG; QD; PO
     Route: 048
     Dates: start: 20080626, end: 20080711

REACTIONS (1)
  - PERIORBITAL HAEMATOMA [None]
